FAERS Safety Report 12531789 (Version 1)
Quarter: 2016Q3

REPORT INFORMATION
  Report Type: Spontaneous
  Country: FR (occurrence: FR)
  Receive Date: 20160706
  Receipt Date: 20160706
  Transmission Date: 20161109
  Serious: Yes (Other)
  Sender: FDA-Public Use
  Company Number: FR-PFIZER INC-2016317500

PATIENT
  Age: 62 Year
  Sex: Male

DRUGS (1)
  1. SILDENAFIL PFIZER [Suspect]
     Active Substance: SILDENAFIL
     Dosage: UNK

REACTIONS (4)
  - Blood pressure decreased [Unknown]
  - Cyanopsia [Unknown]
  - Glaucoma [Unknown]
  - Fatigue [Unknown]
